FAERS Safety Report 16896581 (Version 3)
Quarter: 2019Q4

REPORT INFORMATION
  Report Type: Spontaneous
  Country: JP (occurrence: JP)
  Receive Date: 20191008
  Receipt Date: 20191219
  Transmission Date: 20200122
  Serious: Yes (Hospitalization)
  Sender: FDA-Public Use
  Company Number: JP-009507513-1910JPN007032

PATIENT
  Age: 78 Year
  Sex: Female
  Weight: 36 kg

DRUGS (18)
  1. TELMISARTAN. [Concomitant]
     Active Substance: TELMISARTAN
     Indication: HYPERTENSION
     Dosage: 40 MG, QD
     Route: 048
  2. LANSOPRAZOLE. [Concomitant]
     Active Substance: LANSOPRAZOLE
     Dosage: 15 MG, QD
     Route: 048
  3. CARBOCYSTEINE [Concomitant]
     Active Substance: CARBOCYSTEINE
     Dosage: 1 DOSAGE FORM, TID
     Route: 048
  4. SODIUM CHLORIDE. [Concomitant]
     Active Substance: SODIUM CHLORIDE
     Dosage: 250 MILLILITER, QD
     Dates: start: 20191001, end: 20191001
  5. OTSUKA NORMAL SALINE [Concomitant]
     Dosage: 0.6 DF
  6. SODIUM CHLORIDE. [Concomitant]
     Active Substance: SODIUM CHLORIDE
     Dosage: 2 DF
  7. PANTHENYL [Concomitant]
     Dosage: 2 DF
  8. FULCALIQ [Concomitant]
     Active Substance: AMINO ACIDS\CARBOHYDRATES\ELECTROLYTES NOS\VITAMINS
     Dosage: 1 DF
  9. CUPRIC SULFATE (+) FERRIC CHLORIDE (+) MANGANESE CHLORIDE (+) POTASSIU [Concomitant]
     Dosage: 1 DF
  10. OXIFAST [Concomitant]
     Active Substance: OXYCODONE
     Dosage: 50 MILLIGRAM
  11. CARBAZOCHROME [Concomitant]
     Active Substance: CARBAZOCHROME
     Dosage: 1 DOSAGE FORM
  12. TEDIZOLID PHOSPHATE. [Suspect]
     Active Substance: TEDIZOLID PHOSPHATE
     Indication: STAPHYLOCOCCAL INFECTION
     Dosage: 200 MG, QD
     Route: 041
     Dates: start: 20191001, end: 20191001
  13. KIDMIN [Concomitant]
     Active Substance: AMINO ACIDS\ELECTROLYTES NOS
     Dosage: 200 MILLILITER
  14. CETILO [Concomitant]
     Active Substance: SENNA LEAF
     Dosage: 3 DOSAGE FORM, TID
     Route: 048
  15. CELECOX [Concomitant]
     Active Substance: CELECOXIB
     Dosage: 100 MILLIGRAM, BID
     Route: 048
  16. FENTOS [Concomitant]
     Active Substance: FENTANYL
     Indication: ANALGESIC THERAPY
     Dosage: 8 MG, QD
     Route: 062
  17. SYMPROIC [Concomitant]
     Active Substance: NALDEMEDINE
     Dosage: 1 DF, QD
     Route: 048
  18. AMBROXOL HYDROCHLORIDE [Concomitant]
     Active Substance: AMBROXOL HYDROCHLORIDE
     Dosage: 1 DF, TID
     Route: 048

REACTIONS (4)
  - Rash [Recovering/Resolving]
  - Drug eruption [Recovering/Resolving]
  - Erythema [Recovering/Resolving]
  - Pruritus [Recovering/Resolving]

NARRATIVE: CASE EVENT DATE: 20191001
